FAERS Safety Report 4301827-7 (Version None)
Quarter: 2004Q1

REPORT INFORMATION
  Report Type: 
  Country: None (occurrence: None)
  Receive Date: 20040126
  Receipt Date: 20031007
  Transmission Date: 20041129
  Serious: No
  Sender: FDA-Public Use
  Company Number: USA031049278

PATIENT
  Age: 46 Year
  Sex: Male
  Weight: 91 kg

DRUGS (4)
  1. STRATTERA [Suspect]
     Indication: ATTENTION DEFICIT/HYPERACTIVITY DISORDER
     Dosage: 80 MG/1 IN THE MORNING
     Dates: start: 20030907
  2. SYNTHROID [Concomitant]
  3. CELEBREX [Concomitant]
  4. CLONAZEPAM [Concomitant]

REACTIONS (5)
  - ABNORMAL DREAMS [None]
  - DYSURIA [None]
  - HOT FLUSH [None]
  - HYPERHIDROSIS [None]
  - URINARY RETENTION [None]
